FAERS Safety Report 9663472 (Version 1)
Quarter: 2013Q4

REPORT INFORMATION
  Report Type: Spontaneous
  Country: TR (occurrence: TR)
  Receive Date: 20131101
  Receipt Date: 20131101
  Transmission Date: 20140711
  Serious: Yes (Other)
  Sender: FDA-Public Use
  Company Number: TR-ACCORD-020186

PATIENT
  Age: 30 Year
  Sex: Female

DRUGS (4)
  1. MONTELUKAST [Suspect]
     Indication: ASTHMA
     Route: 048
  2. FOLIC ACID [Suspect]
     Indication: PRODUCT USED FOR UNKNOWN INDICATION
  3. SALBUTAMOL SULFATE [Suspect]
     Indication: ASTHMA
     Dosage: AEROSOL 20 MCG/DOSAGE
  4. IPRATROPIUM BROMIDE [Suspect]
     Indication: ASTHMA
     Dosage: 20 MCG/DOSAGE

REACTIONS (2)
  - Vanishing twin syndrome [Unknown]
  - Exposure during pregnancy [Unknown]
